FAERS Safety Report 6626137-4 (Version None)
Quarter: 2010Q1

REPORT INFORMATION
  Report Type: 
  Country: None (occurrence: None)
  Receive Date: 20100310
  Receipt Date: 20100224
  Transmission Date: 20100710
  Serious: Yes (Hospitalization, Other)
  Sender: FDA-Public Use
  Company Number: PHEH2009US10051

PATIENT
  Sex: Male
  Weight: 22 kg

DRUGS (5)
  1. EXJADE [Suspect]
     Indication: IRON OVERLOAD
     Dosage: 500 MG, QD
     Route: 048
     Dates: start: 20070307, end: 20080816
  2. EXJADE [Suspect]
     Dosage: 375 MG, QD
     Route: 048
     Dates: end: 20090501
  3. EXJADE [Suspect]
     Dosage: 500 MG, QD
     Route: 048
     Dates: start: 20090501
  4. EXJADE [Suspect]
     Dosage: 374 MG, QD
     Route: 048
     Dates: start: 20080901
  5. BLOOD TRANSFUSION, AUXILIARY PRODUCTS [Concomitant]
     Dosage: EVERY MONTH

REACTIONS (37)
  - AMINO ACID LEVEL INCREASED [None]
  - BACK PAIN [None]
  - BLOOD BICARBONATE ABNORMAL [None]
  - BLOOD CALCIUM DECREASED [None]
  - BLOOD CHLORIDE INCREASED [None]
  - BLOOD ELECTROLYTES DECREASED [None]
  - BLOOD GLUCOSE INCREASED [None]
  - BLOOD PHOSPHORUS INCREASED [None]
  - BLOOD UREA DECREASED [None]
  - BLOOD URIC ACID DECREASED [None]
  - BLOOD URINE [None]
  - CALCIUM IONISED INCREASED [None]
  - CARBON DIOXIDE DECREASED [None]
  - CONSTIPATION [None]
  - DECREASED APPETITE [None]
  - DIARRHOEA [None]
  - FANCONI SYNDROME ACQUIRED [None]
  - GAIT DISTURBANCE [None]
  - GLUCOSE URINE PRESENT [None]
  - HAEMATOCRIT DECREASED [None]
  - HAEMOGLOBIN DECREASED [None]
  - HYPERCALCIURIA [None]
  - HYPERTENSION [None]
  - HYPOKALAEMIA [None]
  - HYPOPHOSPHATAEMIA [None]
  - ILEUS [None]
  - MEAN CELL HAEMOGLOBIN CONCENTRATION INCREASED [None]
  - METABOLIC ACIDOSIS [None]
  - NAUSEA [None]
  - RED BLOOD CELL COUNT DECREASED [None]
  - RENAL TUBULAR DISORDER [None]
  - URINE ANALYSIS ABNORMAL [None]
  - URINE CALCIUM/CREATININE RATIO INCREASED [None]
  - URINE KETONE BODY PRESENT [None]
  - URINE PHOSPHATE INCREASED [None]
  - URINE POTASSIUM INCREASED [None]
  - WHITE BLOOD CELL COUNT INCREASED [None]
